FAERS Safety Report 9941591 (Version 2)
Quarter: 2014Q1

REPORT INFORMATION
  Report Type: Report from Study
  Country: US (occurrence: US)
  Receive Date: 20140303
  Receipt Date: 20140303
  Transmission Date: 20141002
  Serious: No
  Sender: FDA-Public Use
  Company Number: US-ABBVIE-12P-163-1011624-00

PATIENT
  Age: 64 Year
  Sex: Female

DRUGS (6)
  1. HUMIRA [Suspect]
     Indication: PSORIATIC ARTHROPATHY
     Route: 058
     Dates: start: 201210
  2. ZIAC [Concomitant]
     Indication: BLOOD PRESSURE
     Dosage: DAILY
     Route: 048
  3. MOBIC [Concomitant]
     Indication: PSORIATIC ARTHROPATHY
     Dosage: DAILY
     Route: 048
  4. AMITRIPTYLINE [Concomitant]
     Indication: INSOMNIA
     Route: 048
  5. AMITRIPTYLINE [Concomitant]
     Indication: DEPRESSION
  6. EFFEXOR [Concomitant]
     Indication: DEPRESSION
     Dosage: 75 MG DAILY
     Route: 048

REACTIONS (5)
  - Injection site vesicles [Not Recovered/Not Resolved]
  - Injection site erythema [Not Recovered/Not Resolved]
  - Injection site pruritus [Not Recovered/Not Resolved]
  - Injection site pain [Not Recovered/Not Resolved]
  - Injection site reaction [Unknown]
